FAERS Safety Report 6139758-2 (Version None)
Quarter: 2009Q2

REPORT INFORMATION
  Report Type: 
  Country: None (occurrence: None)
  Receive Date: 20090401
  Receipt Date: 20090325
  Transmission Date: 20091009
  Serious: Yes (Hospitalization, Congenital Anomaly)
  Sender: FDA-Public Use
  Company Number: A0739976A

PATIENT
  Sex: Female
  Weight: 3.6 kg

DRUGS (6)
  1. PAXIL [Suspect]
     Indication: DEPRESSION
     Dosage: 20MG PER DAY
     Dates: start: 19920101, end: 19960201
  2. VITAMIN TAB [Concomitant]
     Dates: start: 19950101, end: 19950101
  3. XANAX [Concomitant]
  4. LORTAB [Concomitant]
  5. DESYREL [Concomitant]
     Dates: end: 19960201
  6. TRAZODONE HCL [Concomitant]
     Dates: end: 19960201

REACTIONS (4)
  - DRUG EXPOSURE DURING PREGNANCY [None]
  - PULMONARY VALVE STENOSIS [None]
  - RENAL IMPAIRMENT [None]
  - RIGHT VENTRICULAR HYPERTROPHY [None]
